FAERS Safety Report 6248000-3 (Version None)
Quarter: 2009Q2

REPORT INFORMATION
  Report Type: 
  Country: None (occurrence: None)
  Receive Date: 20090626
  Receipt Date: 20090615
  Transmission Date: 20091009
  Serious: Yes (Other)
  Sender: FDA-Public Use
  Company Number: US-AMGEN-TCS345241

PATIENT
  Sex: Female
  Weight: 44 kg

DRUGS (8)
  1. ENBREL [Suspect]
     Indication: JUVENILE ARTHRITIS
     Route: 058
     Dates: start: 20021201
  2. OXAPROZIN [Suspect]
     Dates: start: 20090108
  3. NAPROXEN [Suspect]
  4. MELOXICAM [Concomitant]
     Dates: end: 20080130
  5. NEXIUM [Concomitant]
  6. ZYRTEC [Concomitant]
  7. SINGULAIR [Concomitant]
  8. NASONEX [Concomitant]

REACTIONS (5)
  - AMNESIA [None]
  - GASTRIC ULCER [None]
  - GASTRITIS [None]
  - INJECTION SITE IRRITATION [None]
  - LEARNING DISORDER [None]
